FAERS Safety Report 8578026-6 (Version None)
Quarter: 2012Q3

REPORT INFORMATION
  Report Type: 
  Country: None (occurrence: None)
  Receive Date: 20120726
  Receipt Date: 20120710
  Transmission Date: 20120928
  Serious: Yes (Disabling, Other)
  Sender: FDA-Public Use
  Company Number: 2012AP002153

PATIENT
  Age: 51 Year
  Sex: Female

DRUGS (12)
  1. CALCIUM CARBONATE [Concomitant]
  2. CALCITRIOL [Concomitant]
  3. CALCIUM CARBONATE [Concomitant]
  4. TACROLIMUS [Concomitant]
  5. OESTRANORM (OESTRANORM) [Concomitant]
  6. ALENDRONATE SODIUM [Suspect]
     Indication: PELVIC FRACTURE
     Dosage: 70 MG, QW
     Dates: start: 20010101, end: 20080101
  7. MYCOPHENOLATE MOFETIL [Concomitant]
  8. PREDNISONE TAB [Concomitant]
  9. CALCITRIOL [Concomitant]
  10. PAMIDRONIC ACID (PAMIDRONIC ACID) [Concomitant]
  11. PREDNISONE TAB [Concomitant]
  12. CYCLOSPORINE [Concomitant]

REACTIONS (6)
  - FRACTURE NONUNION [None]
  - LOW TURNOVER OSTEOPATHY [None]
  - ATYPICAL FEMUR FRACTURE [None]
  - BONE GRAFT [None]
  - FEMUR FRACTURE [None]
  - FALL [None]
